FAERS Safety Report 17889143 (Version 5)
Quarter: 2020Q3

REPORT INFORMATION
  Report Type: Report from Study
  Country: IT (occurrence: IT)
  Receive Date: 20200612
  Receipt Date: 20200715
  Transmission Date: 20201103
  Serious: Yes (Death, Hospitalization)
  Sender: FDA-Public Use
  Company Number: NVSC2020IT161226

PATIENT
  Age: 64 Year
  Sex: Male

DRUGS (2)
  1. ILARIS [Suspect]
     Active Substance: CANAKINUMAB
     Indication: COVID-19
     Dosage: 300 MG
     Route: 065
     Dates: start: 20200423, end: 20200428
  2. ILARIS [Suspect]
     Active Substance: CANAKINUMAB
     Indication: COVID-19 PNEUMONIA
     Dosage: 300 MG, ONCE/SINGLE
     Route: 065
     Dates: start: 20200424

REACTIONS (10)
  - Tachyarrhythmia [Fatal]
  - Hypoxia [Fatal]
  - Haemodynamic instability [Fatal]
  - Respiratory failure [Fatal]
  - Pseudomonas infection [Fatal]
  - Hypercapnia [Fatal]
  - Renal failure [Fatal]
  - Superinfection bacterial [Fatal]
  - Respiratory acidosis [Fatal]
  - Lung disorder [Fatal]

NARRATIVE: CASE EVENT DATE: 20200429
